FAERS Safety Report 15202729 (Version 1)
Quarter: 2018Q3

REPORT INFORMATION
  Report Type: Report from Study
  Country: AR (occurrence: AR)
  Receive Date: 20180726
  Receipt Date: 20180726
  Transmission Date: 20181010
  Serious: Yes (Other)
  Sender: FDA-Public Use
  Company Number: PHHY2018AR030618

PATIENT
  Sex: Female

DRUGS (2)
  1. TEGRETOL XR [Suspect]
     Active Substance: CARBAMAZEPINE
     Indication: TRIGEMINAL NEURALGIA
     Dosage: 1 DF, UNK
     Route: 065
  2. TEGRETOL [Suspect]
     Active Substance: CARBAMAZEPINE
     Indication: TRIGEMINAL NEURALGIA
     Dosage: 1 DF (400), Q4H
     Route: 065

REACTIONS (7)
  - Condition aggravated [Unknown]
  - Facial pain [Recovered/Resolved]
  - Dyskinesia [Not Recovered/Not Resolved]
  - Drug ineffective [Unknown]
  - Insomnia [Unknown]
  - Trigeminal neuralgia [Unknown]
  - Crying [Unknown]
